FAERS Safety Report 7860370-9 (Version None)
Quarter: 2011Q4

REPORT INFORMATION
  Report Type: 
  Country: None (occurrence: None)
  Receive Date: 20111026
  Receipt Date: 20111004
  Transmission Date: 20120403
  Serious: Yes (Hospitalization)
  Sender: FDA-Public Use
  Company Number: 54973 AE # 609

PATIENT
  Age: 66 Year
  Sex: Male

DRUGS (4)
  1. QUININE SULFATE [Suspect]
     Indication: MUSCLE SPASMS
     Dosage: SEE SECTION A, # 5
  2. QUININE SULFATE [Suspect]
     Indication: BACK PAIN
     Dosage: SEE SECTION A, # 5
  3. QUININE SULFATE [Suspect]
     Indication: MUSCLE SPASMS
     Dosage: SEE SECTION A, # 5
  4. QUININE SULFATE [Suspect]
     Indication: PAIN IN EXTREMITY
     Dosage: SEE SECTION A, # 5

REACTIONS (3)
  - DYSPNOEA [None]
  - HEART RATE IRREGULAR [None]
  - ARRHYTHMIA [None]
